FAERS Safety Report 17541060 (Version 1)
Quarter: 2020Q1

REPORT INFORMATION
  Report Type: Spontaneous
  Country: US (occurrence: US)
  Receive Date: 20200313
  Receipt Date: 20200313
  Transmission Date: 20200409
  Serious: No
  Sender: FDA-Public Use
  Company Number: US-PERRIGO-19US005004

PATIENT
  Age: 34 Year
  Sex: Male
  Weight: 53.52 kg

DRUGS (2)
  1. TESTOSTERONE CYPIONATE. [Suspect]
     Active Substance: TESTOSTERONE CYPIONATE
     Indication: BLOOD TESTOSTERONE DECREASED
     Dosage: 50 MG, SINGLE
     Route: 030
     Dates: start: 20190408, end: 20190408
  2. TESTOSTERONE CYPIONATE. [Suspect]
     Active Substance: TESTOSTERONE CYPIONATE
     Dosage: 50 MG, SINGLE
     Route: 030
     Dates: start: 20190415, end: 20190415

REACTIONS (6)
  - Product administered at inappropriate site [Recovered/Resolved]
  - Weight gain poor [Not Recovered/Not Resolved]
  - Therapeutic product effect decreased [Unknown]
  - Inappropriate schedule of product administration [Recovered/Resolved]
  - Energy increased [Recovered/Resolved]
  - Injection site pain [Recovered/Resolved]

NARRATIVE: CASE EVENT DATE: 20190408
